FAERS Safety Report 6383114-9 (Version None)
Quarter: 2009Q3

REPORT INFORMATION
  Report Type: 
  Country: None (occurrence: None)
  Receive Date: 20090930
  Receipt Date: 20090921
  Transmission Date: 20100115
  Serious: Yes (Hospitalization, Disabling, Other)
  Sender: FDA-Public Use
  Company Number: US-MERCK-0606USA05716

PATIENT
  Age: 52 Year
  Sex: Female
  Weight: 71 kg

DRUGS (10)
  1. FOSAMAX [Suspect]
     Indication: OSTEOPOROSIS
     Route: 048
     Dates: end: 20020301
  2. FOSAMAX [Suspect]
     Route: 048
     Dates: start: 20000424, end: 20010129
  3. FOSAMAX [Suspect]
     Indication: SYSTEMIC LUPUS ERYTHEMATOSUS
     Route: 048
     Dates: end: 20020301
  4. FOSAMAX [Suspect]
     Route: 048
     Dates: start: 20000424, end: 20010129
  5. ZOMETA [Suspect]
     Route: 042
     Dates: start: 20031024, end: 20041221
  6. AREDIA [Suspect]
     Route: 042
     Dates: start: 20030823, end: 20031024
  7. NORVASC [Concomitant]
     Route: 065
     Dates: start: 19930101
  8. ZESTRIL [Concomitant]
     Route: 065
     Dates: start: 19930101
  9. PREDNISONE [Concomitant]
     Indication: SYSTEMIC LUPUS ERYTHEMATOSUS
     Route: 065
     Dates: start: 19930101
  10. PLAQUENIL [Concomitant]
     Indication: SYSTEMIC LUPUS ERYTHEMATOSUS
     Route: 065
     Dates: start: 19930101

REACTIONS (38)
  - ACCIDENT [None]
  - ADVERSE DRUG REACTION [None]
  - ANGINA UNSTABLE [None]
  - BLADDER DISORDER [None]
  - BURNING SENSATION [None]
  - CEREBRAL ARTERIOSCLEROSIS [None]
  - CHEST DISCOMFORT [None]
  - CHEST PAIN [None]
  - CONTUSION [None]
  - CORONARY ARTERY DISEASE [None]
  - COUGH [None]
  - DIZZINESS [None]
  - DYSPNOEA [None]
  - ECCHYMOSIS [None]
  - EPISTAXIS [None]
  - FALL [None]
  - GASTROOESOPHAGEAL REFLUX DISEASE [None]
  - GINGIVAL INFECTION [None]
  - GOUT [None]
  - LUNG DISORDER [None]
  - MALAISE [None]
  - MULTIPLE MYELOMA [None]
  - MUSCULOSKELETAL CHEST PAIN [None]
  - MYOCARDIAL ISCHAEMIA [None]
  - NEUROPATHY PERIPHERAL [None]
  - OSTEOARTHRITIS [None]
  - OSTEOMYELITIS [None]
  - OSTEONECROSIS [None]
  - PAIN IN EXTREMITY [None]
  - PARANASAL SINUS HYPERSECRETION [None]
  - ROAD TRAFFIC ACCIDENT [None]
  - SINUSITIS [None]
  - SPUTUM DISCOLOURED [None]
  - SWOLLEN TONGUE [None]
  - UPPER RESPIRATORY TRACT INFECTION [None]
  - URINARY TRACT INFECTION [None]
  - VISION BLURRED [None]
  - WEIGHT DECREASED [None]
